FAERS Safety Report 14848361 (Version 15)
Quarter: 2020Q3

REPORT INFORMATION
  Report Type: Spontaneous
  Country: US (occurrence: US)
  Receive Date: 20180504
  Receipt Date: 20200714
  Transmission Date: 20201102
  Serious: Yes (Hospitalization)
  Sender: FDA-Public Use
  Company Number: US-PFIZER INC-2018182060

PATIENT
  Age: 88 Year
  Sex: Female
  Weight: 55 kg

DRUGS (11)
  1. IBRANCE [Suspect]
     Active Substance: PALBOCICLIB
     Dosage: 125 MG, CYCLIC (DAILY FOR 21 DAYS, THEN 1 WEEK OFF ALSO REPORTED AT NIGHT ON THREE WKS,OFF ONE WK)
     Route: 048
     Dates: end: 201908
  2. IBRANCE [Suspect]
     Active Substance: PALBOCICLIB
     Dosage: 125 MG, CYCLIC (DAILY FOR 21 DAYS, THEN 1 WEEK OFF ALSO REPORTED AT NIGHT ON THREE WKS,OFF ONE WK)
     Route: 048
     Dates: start: 201908, end: 201908
  3. HYDROCHLOROTHIAZIDE. [Concomitant]
     Active Substance: HYDROCHLOROTHIAZIDE
     Dosage: UNK
     Dates: start: 201804
  4. OMEPRAZOLE. [Concomitant]
     Active Substance: OMEPRAZOLE
     Dosage: UNK
     Dates: start: 201804
  5. EXEMESTANE. [Concomitant]
     Active Substance: EXEMESTANE
     Indication: HORMONE THERAPY
     Dosage: 25 MG
     Dates: start: 201804, end: 201907
  6. IBRANCE [Suspect]
     Active Substance: PALBOCICLIB
     Dosage: 125 MG, CYCLIC (DAILY FOR 21 DAYS, THEN 1 WEEK OFF ALSO REPORTED AT NIGHT ON THREE WKS,OFF ONE WK)
     Route: 048
  7. EXEMESTANE. [Concomitant]
     Active Substance: EXEMESTANE
     Dosage: 25 MG, 1X/DAY(IN THE AFTERNOON)
     Route: 048
     Dates: start: 2019, end: 201908
  8. RAMIPRIL. [Concomitant]
     Active Substance: RAMIPRIL
     Dosage: UNK
     Dates: start: 201804
  9. IBRANCE [Suspect]
     Active Substance: PALBOCICLIB
     Dosage: 125 MG, CYCLIC, (DIRECTIONS OF 28 DAYS AND 1 WEEK OFF)
     Dates: start: 201908, end: 201908
  10. LEVOTHYROXINE SODIUM. [Concomitant]
     Active Substance: LEVOTHYROXINE SODIUM
     Dosage: UNK
     Dates: start: 201804
  11. IBRANCE [Suspect]
     Active Substance: PALBOCICLIB
     Indication: BREAST CANCER METASTATIC
     Dosage: 125 MG, CYCLIC (DAILY FOR 21 DAYS, THEN 1 WEEK OFF ALSO REPORTED AT NIGHT ON THREE WKS,OFF ONE WK)
     Route: 048
     Dates: start: 201804

REACTIONS (16)
  - Blister [Recovered/Resolved]
  - Nasopharyngitis [Unknown]
  - Alopecia [Recovered/Resolved]
  - Acne [Recovered/Resolved]
  - Oral pain [Recovered/Resolved]
  - Condition aggravated [Not Recovered/Not Resolved]
  - Iron deficiency [Not Recovered/Not Resolved]
  - Osteoporosis [Recovered/Resolved]
  - Neoplasm progression [Unknown]
  - Taste disorder [Unknown]
  - Calcium deficiency [Recovered/Resolved]
  - Product prescribing issue [Unknown]
  - Stomatitis [Recovered/Resolved]
  - Fatigue [Not Recovered/Not Resolved]
  - Rash [Recovered/Resolved]
  - Hypoacusis [Not Recovered/Not Resolved]

NARRATIVE: CASE EVENT DATE: 2018
